FAERS Safety Report 5945557-4 (Version None)
Quarter: 2008Q4

REPORT INFORMATION
  Report Type: 
  Country: None (occurrence: None)
  Receive Date: 20081107
  Receipt Date: 20081030
  Transmission Date: 20090506
  Serious: Yes (Hospitalization, Other)
  Sender: FDA-Public Use
  Company Number: US-ROXANE LABORATORIES, INC.-2008-RO-00185RO

PATIENT
  Age: 64 Year
  Sex: Male

DRUGS (6)
  1. CYCLOPHOSPHAMIDE [Suspect]
     Indication: GLOMERULONEPHRITIS RAPIDLY PROGRESSIVE
     Dosage: 150MG
  2. PREDNISONE TAB [Suspect]
     Indication: GLOMERULONEPHRITIS RAPIDLY PROGRESSIVE
     Dosage: 80MG
  3. PREDNISONE TAB [Suspect]
     Dosage: 30MG
  4. GLUCOCORTICOID [Suspect]
     Indication: GLOMERULONEPHRITIS RAPIDLY PROGRESSIVE
  5. TRIMETHOPRIM + SULFAMETHOXAZOLE [Suspect]
     Indication: ANTIFUNGAL PROPHYLAXIS
  6. DAPSONE [Suspect]
     Indication: ANTIFUNGAL PROPHYLAXIS
     Dosage: 100MG

REACTIONS (5)
  - CLOSTRIDIAL INFECTION [None]
  - LEUKOPENIA [None]
  - PNEUMOCYSTIS JIROVECI INFECTION [None]
  - RASH [None]
  - STEVENS-JOHNSON SYNDROME [None]
